FAERS Safety Report 5949537-4 (Version None)
Quarter: 2008Q4

REPORT INFORMATION
  Report Type: 
  Country: None (occurrence: None)
  Receive Date: 20081112
  Receipt Date: 20081107
  Transmission Date: 20090506
  Serious: Yes (Other)
  Sender: FDA-Public Use
  Company Number: PHHO2008HU13304

PATIENT
  Sex: Male
  Weight: 91 kg

DRUGS (5)
  1. ZOLEDRONATE T29581+SOLINJ+BM [Suspect]
     Indication: METASTASES TO BONE
     Dosage: 4 MG, EVERY 3-4 WEEKS
     Route: 042
     Dates: start: 20060328
  2. VITAMIN D [Concomitant]
     Dosage: UNK
     Dates: start: 20060328
  3. CALCIUM [Concomitant]
     Dosage: UNK
     Dates: start: 20060328
  4. OLICARD [Concomitant]
     Dosage: 60 MG, QD
     Route: 048
     Dates: start: 20030901
  5. BISOPROLOL FUMARATE [Concomitant]
     Dosage: 5 MG, QD
     Route: 048
     Dates: start: 20030901

REACTIONS (2)
  - OSTEONECROSIS [None]
  - TOOTH EXTRACTION [None]
